FAERS Safety Report 9804089 (Version 1)
Quarter: 2014Q1

REPORT INFORMATION
  Report Type: Spontaneous
  Country: US (occurrence: US)
  Receive Date: 20140108
  Receipt Date: 20140108
  Transmission Date: 20141002
  Serious: No
  Sender: FDA-Public Use
  Company Number: US-PFIZER INC-2014003277

PATIENT
  Sex: Female

DRUGS (12)
  1. FLUCONAZOLE [Suspect]
     Dosage: UNK
  2. FAMOTIDINE [Suspect]
     Dosage: UNK
  3. INDERAL [Suspect]
     Dosage: UNK
  4. PEPCID [Suspect]
     Dosage: UNK
  5. LOBAC [Suspect]
     Dosage: UNK
  6. ACIPHEX [Suspect]
     Dosage: UNK
  7. LODINE XL [Suspect]
     Dosage: UNK
  8. DEPAKOTE [Suspect]
     Dosage: UNK
  9. TEGRETOL XR [Suspect]
     Dosage: UNK
  10. GABITRIL [Suspect]
     Dosage: UNK
  11. LUSONEX [Suspect]
     Dosage: UNK
  12. CARBAMAZEPINE [Suspect]
     Dosage: UNK

REACTIONS (1)
  - Drug hypersensitivity [Unknown]
